FAERS Safety Report 5163574-1 (Version None)
Quarter: 2006Q4

REPORT INFORMATION
  Report Type: 
  Country: None (occurrence: None)
  Receive Date: 20061128
  Receipt Date: 20061128
  Transmission Date: 20070319
  Serious: Yes (Congenital Anomaly)
  Sender: FDA-Public Use
  Company Number: None

PATIENT
  Age: 20 Year
  Sex: Male
  Weight: 70.3075 kg

DRUGS (1)
  1. STRATTERA [Suspect]
     Indication: ATTENTION DEFICIT/HYPERACTIVITY DISORDER
     Dosage: 100 MG 1X DAY ORAL
     Route: 048
     Dates: start: 20050401, end: 20050401

REACTIONS (13)
  - ABDOMINAL PAIN [None]
  - CHILLS [None]
  - CHROMATURIA [None]
  - FATIGUE [None]
  - HEADACHE [None]
  - HYPERHIDROSIS [None]
  - INFLUENZA LIKE ILLNESS [None]
  - LIVER DISORDER [None]
  - NAUSEA [None]
  - NERVOUS SYSTEM DISORDER [None]
  - PYREXIA [None]
  - VISION BLURRED [None]
  - VOMITING [None]
